FAERS Safety Report 7549046-5 (Version None)
Quarter: 2011Q2

REPORT INFORMATION
  Report Type: 
  Country: None (occurrence: None)
  Receive Date: 20110615
  Receipt Date: 20110607
  Transmission Date: 20111010
  Serious: Yes (Other)
  Sender: FDA-Public Use
  Company Number: GB-ROCHE-781860

PATIENT
  Age: 60 Year
  Sex: Female

DRUGS (1)
  1. TOCILIZUMAB [Suspect]
     Route: 065

REACTIONS (3)
  - HEADACHE [None]
  - EPILEPSY [None]
  - CONFUSIONAL STATE [None]
